FAERS Safety Report 8413049-9 (Version None)
Quarter: 2012Q2

REPORT INFORMATION
  Report Type: 
  Country: None (occurrence: None)
  Receive Date: 20120323
  Receipt Date: 20110218
  Transmission Date: 20120825
  Serious: Yes (Hospitalization)
  Sender: FDA-Public Use
  Company Number: 163-21880-11022568

PATIENT
  Age: 59 Year
  Sex: Male

DRUGS (11)
  1. HYDRALAZINE (HYDRALAZINE) (TABLETS) [Concomitant]
  2. METOPROLOL (METOPROLOL) (TABLETS) [Concomitant]
  3. REVLIMID [Suspect]
     Indication: MULTIPLE MYELOMA
     Dosage: 10 MG, M-W-F Q 28 DAYS, PO DAILY, PO 10 MG, DAILY, PO
     Route: 048
     Dates: start: 20091202
  4. REVLIMID [Suspect]
     Indication: MULTIPLE MYELOMA
     Dosage: 10 MG, M-W-F Q 28 DAYS, PO DAILY, PO 10 MG, DAILY, PO
     Route: 048
     Dates: start: 20090201
  5. REVLIMID [Suspect]
     Indication: MULTIPLE MYELOMA
     Dosage: 10 MG, M-W-F Q 28 DAYS, PO DAILY, PO 10 MG, DAILY, PO
     Route: 048
     Dates: start: 20090501
  6. ACYCLOVIR [Concomitant]
  7. ISOSORBIDE (ISOSORBIDE) (TABLETS) [Concomitant]
  8. NOVOLOG (INSULIN ASPART) (UNKNOWN) [Concomitant]
  9. VITAMIN D (ERGOCALCIFEROL) (CAPSULES) [Concomitant]
  10. VICODIN [Concomitant]
  11. AVELOX (MOXIFLOXACIN HYDROCHLORIDE) (TABLETS) [Concomitant]

REACTIONS (1)
  - PNEUMONIA [None]
